FAERS Safety Report 12980368 (Version 1)
Quarter: 2016Q4

REPORT INFORMATION
  Report Type: Other
  Country: US (occurrence: US)
  Receive Date: 20161128
  Receipt Date: 20161128
  Transmission Date: 20170207
  Serious: Yes (Other)
  Sender: FDA-Public Use
  Company Number: US-BELCHER PHARMACEUTICALS, LLC-2016VTS00246

PATIENT
  Age: 16 Year
  Sex: Male
  Weight: 54.42 kg

DRUGS (1)
  1. HYOSCYAMINE SULFATE SL [Suspect]
     Active Substance: HYOSCYAMINE SULFATE
     Indication: ABDOMINAL PAIN UPPER
     Dosage: 0.125 MG, 3X/DAY
     Route: 060
     Dates: start: 20160825, end: 20160901

REACTIONS (14)
  - Vomiting [Recovered/Resolved]
  - Anxiety [Not Recovered/Not Resolved]
  - Mydriasis [Unknown]
  - Abdominal discomfort [Unknown]
  - Abdominal pain [Unknown]
  - Tremor [Recovered/Resolved]
  - Constipation [Unknown]
  - Panic attack [None]
  - Dysuria [Recovered/Resolved]
  - Dry mouth [Recovered/Resolved]
  - Vision blurred [Recovered/Resolved]
  - Dizziness [Recovered/Resolved]
  - Feeling hot [Recovered/Resolved]
  - Heart rate irregular [Recovered/Resolved]

NARRATIVE: CASE EVENT DATE: 201608
